FAERS Safety Report 8116021-1 (Version None)
Quarter: 2011Q4

REPORT INFORMATION
  Report Type: 
  Country: None (occurrence: None)
  Receive Date: 20111227
  Receipt Date: 20110927
  Transmission Date: 20120403
  Serious: Yes (Other)
  Sender: FDA-Public Use
  Company Number: PHHY2011US65208

PATIENT
  Age: 51 Year
  Sex: Female

DRUGS (1)
  1. GILENYA [Suspect]
     Dosage: OT
     Route: 050
     Dates: start: 20110113

REACTIONS (2)
  - SINUSITIS [None]
  - HEPATIC ENZYME INCREASED [None]
